FAERS Safety Report 6544246-5 (Version None)
Quarter: 2010Q1

REPORT INFORMATION
  Report Type: 
  Country: None (occurrence: None)
  Receive Date: 20100119
  Receipt Date: 20100119
  Transmission Date: 20100710
  Serious: Yes (Life-Threatening, Hospitalization)
  Sender: FDA-Public Use
  Company Number: None

PATIENT
  Sex: Male
  Weight: 103 kg

DRUGS (9)
  1. PACLITAXEL 400MG Q 28 DAYS IV [Suspect]
     Indication: METASTATIC MALIGNANT MELANOMA
     Route: 042
     Dates: start: 20091125
  2. CARBOPLATIN 560MG Q 28 DAYS IV [Suspect]
     Indication: METASTATIC MALIGNANT MELANOMA
     Route: 042
     Dates: start: 20091125
  3. TEMOZOLOMIDE270MG DAY 2-6 PO [Suspect]
     Indication: METASTATIC MALIGNANT MELANOMA
     Route: 048
     Dates: start: 20091126, end: 20091130
  4. METFORMIN HCL [Concomitant]
  5. LISINOPRIL [Concomitant]
  6. AMLODIPINE [Concomitant]
  7. GENU [Concomitant]
  8. OXYCODONE [Concomitant]
  9. BENZONATATE [Concomitant]

REACTIONS (11)
  - ABDOMINAL PAIN [None]
  - ASCITES [None]
  - ASTHENIA [None]
  - COUGH [None]
  - DIARRHOEA [None]
  - FAECES DISCOLOURED [None]
  - HAEMORRHAGE [None]
  - MUSCULOSKELETAL CHEST PAIN [None]
  - NAUSEA [None]
  - OEDEMA PERIPHERAL [None]
  - VOMITING [None]
